FAERS Safety Report 6993897-2 (Version None)
Quarter: 2010Q3

REPORT INFORMATION
  Report Type: 
  Country: None (occurrence: None)
  Receive Date: 20100917
  Receipt Date: 20100413
  Transmission Date: 20110219
  Serious: No
  Sender: FDA-Public Use
  Company Number: US-ASTRAZENECA-2010SE12462

PATIENT
  Age: 17868 Day
  Sex: Male
  Weight: 99.8 kg

DRUGS (6)
  1. SEROQUEL XR [Suspect]
     Indication: BIPOLAR DISORDER
     Route: 048
     Dates: start: 20100312
  2. TEGRETOL [Concomitant]
  3. KLONOPIN [Concomitant]
  4. NAPROXEN [Concomitant]
  5. LORICEPT [Concomitant]
  6. AMBIEN [Concomitant]

REACTIONS (5)
  - EAR CONGESTION [None]
  - HEADACHE [None]
  - HYPERSENSITIVITY [None]
  - NASAL CONGESTION [None]
  - SINUS DISORDER [None]
